FAERS Safety Report 24324986 (Version 1)
Quarter: 2024Q3

REPORT INFORMATION
  Report Type: Spontaneous
  Country: US (occurrence: None)
  Receive Date: 20240916
  Receipt Date: 20240916
  Transmission Date: 20241017
  Serious: Yes (Hospitalization)
  Sender: Public
  Company Number: None

PATIENT
  Age: 58 Year
  Sex: Male
  Weight: 113.3 kg

DRUGS (1)
  1. MINOCYCLINE [Suspect]
     Active Substance: MINOCYCLINE HYDROCHLORIDE
     Indication: Stenotrophomonas bacteraemia
     Dates: start: 20240905, end: 20240916

REACTIONS (7)
  - Haematemesis [None]
  - Haemoglobin [None]
  - Haemoglobin decreased [None]
  - Oesophageal mucosa erythema [None]
  - Oesophageal haemorrhage [None]
  - Oesophageal ulcer [None]
  - Dysphagia [None]

NARRATIVE: CASE EVENT DATE: 20240905
